FAERS Safety Report 10083878 (Version 2)
Quarter: 2014Q2

REPORT INFORMATION
  Report Type: Spontaneous
  Country: GB (occurrence: None)
  Receive Date: 20140415
  Receipt Date: 20140421
  Transmission Date: 20141212
  Serious: Yes (Disabling, Other)
  Sender: FDA-Public Use
  Company Number: ADR-2014-00595

PATIENT
  Sex: 0

DRUGS (4)
  1. LIORESAL [Suspect]
     Dosage: 85.06 MCG/DAY
  2. MORPHINE [Suspect]
     Route: 037
  3. HYDROMORPHONE [Suspect]
     Dosage: 33.3 MG/ML, 17.002 MG/DAY
  4. CLONIDINE [Suspect]
     Dosage: 444.4 MCG/ML. 226.9 MCG/DAY

REACTIONS (9)
  - Skin ulcer [None]
  - Impaired healing [None]
  - Malaise [None]
  - Angiopathy [None]
  - Muscular weakness [None]
  - Bladder disorder [None]
  - Device infusion issue [None]
  - Granuloma [None]
  - Medical device complication [None]
